FAERS Safety Report 11517760 (Version 1)
Quarter: 2015Q3

REPORT INFORMATION
  Report Type: Spontaneous
  Country: SA (occurrence: SA)
  Receive Date: 20150917
  Receipt Date: 20150917
  Transmission Date: 20151125
  Serious: Yes (Other)
  Sender: FDA-Public Use
  Company Number: SA-PFIZER INC-2015305876

PATIENT
  Age: 72 Year
  Sex: Female

DRUGS (6)
  1. AMPHOTERICIN B. [Concomitant]
     Active Substance: AMPHOTERICIN B
     Indication: KERATITIS
     Dosage: UNK
     Route: 061
  2. VORICONAZOLE. [Suspect]
     Active Substance: VORICONAZOLE
     Indication: KERATITIS
     Dosage: 200 MG, 2X/DAY
     Route: 048
  3. MOXIFLOXACIN. [Concomitant]
     Active Substance: MOXIFLOXACIN
     Indication: KERATITIS
     Dosage: UNK
     Route: 061
  4. GENTAMICIN. [Concomitant]
     Active Substance: GENTAMICIN
     Indication: KERATITIS
     Dosage: UNK
  5. CEFAZOLINE [Concomitant]
     Active Substance: CEFAZOLIN SODIUM
     Indication: KERATITIS
     Dosage: UNK
  6. CEFTAZIDIME. [Concomitant]
     Active Substance: CEFTAZIDIME
     Indication: KERATITIS
     Dosage: UNK

REACTIONS (4)
  - Hepatotoxicity [Unknown]
  - Drug dose titration not performed [Unknown]
  - Tachycardia [Unknown]
  - Hallucination [Unknown]
